FAERS Safety Report 21954945 (Version 1)
Quarter: 2023Q1

REPORT INFORMATION
  Report Type: Report from Study
  Country: US (occurrence: US)
  Receive Date: 20230206
  Receipt Date: 20230206
  Transmission Date: 20230418
  Serious: Yes (Other)
  Sender: FDA-Public Use
  Company Number: US-JNJFOC-20230207734

PATIENT
  Sex: Male

DRUGS (1)
  1. ELMIRON [Suspect]
     Active Substance: PENTOSAN POLYSULFATE SODIUM
     Indication: Angiosarcoma
     Route: 048

REACTIONS (4)
  - Proctitis [Recovered/Resolved]
  - Occult blood positive [Recovered/Resolved]
  - Off label use [Unknown]
  - Off label use [Unknown]
